FAERS Safety Report 17612163 (Version 1)
Quarter: 2020Q2

REPORT INFORMATION
  Report Type: Spontaneous
  Country: FR (occurrence: FR)
  Receive Date: 20200401
  Receipt Date: 20200401
  Transmission Date: 20200713
  Serious: Yes (Death, Life-Threatening)
  Sender: FDA-Public Use
  Company Number: FR-UCBSA-2020012358

PATIENT
  Age: 62 Year
  Sex: Male
  Weight: 92 kg

DRUGS (8)
  1. VIMPAT [Suspect]
     Active Substance: LACOSAMIDE
     Indication: STATUS EPILEPTICUS
     Dosage: 400MG DAILY
     Route: 042
     Dates: start: 20200309, end: 20200314
  2. GARDENAL [PHENOBARBITAL SODIUM] [Suspect]
     Active Substance: PHENOBARBITAL SODIUM
     Indication: STATUS EPILEPTICUS
     Dosage: 400 MILLIGRAM, ONCE DAILY (QD)
     Route: 042
     Dates: start: 20200309
  3. DIPRIVAN [Concomitant]
     Active Substance: PROPOFOL
     Indication: PRODUCT USED FOR UNKNOWN INDICATION
  4. VALPROATE DE SODIUM AGUETTANT [Suspect]
     Active Substance: VALPROATE SODIUM
     Indication: STATUS EPILEPTICUS
     Route: 042
     Dates: start: 20200309, end: 20200314
  5. GARDENAL [PHENOBARBITAL SODIUM] [Suspect]
     Active Substance: PHENOBARBITAL SODIUM
     Dosage: 150 MILLIGRAM, ONCE DAILY (QD)
     Route: 042
     Dates: end: 20200314
  6. VIMPAT [Suspect]
     Active Substance: LACOSAMIDE
     Indication: OFF LABEL USE
  7. HYPNOVEL [MIDAZOLAM HYDROCHLORIDE] [Concomitant]
     Active Substance: MIDAZOLAM HYDROCHLORIDE
     Indication: PRODUCT USED FOR UNKNOWN INDICATION
  8. LEVETIRACETAM MYLAN [Suspect]
     Active Substance: LEVETIRACETAM
     Indication: STATUS EPILEPTICUS
     Dosage: 4 GRAM, ONCE DAILY (QD)
     Route: 042
     Dates: start: 20200309, end: 20200314

REACTIONS (4)
  - Hyperammonaemia [Fatal]
  - Acute kidney injury [Fatal]
  - Off label use [Unknown]
  - Septic shock [Fatal]

NARRATIVE: CASE EVENT DATE: 20200309
